FAERS Safety Report 13840369 (Version 1)
Quarter: 2017Q3

REPORT INFORMATION
  Report Type: Report from Study
  Country: US (occurrence: US)
  Receive Date: 20170807
  Receipt Date: 20170807
  Transmission Date: 20171127
  Serious: Yes (Other)
  Sender: FDA-Public Use
  Company Number: US-ASTELLAS-2017US031334

PATIENT
  Age: 77 Year
  Sex: Male

DRUGS (3)
  1. ERLOTINIB [Suspect]
     Active Substance: ERLOTINIB
     Indication: NON-SMALL CELL LUNG CANCER
     Route: 048
     Dates: start: 201704, end: 201704
  2. ESBRIET [Suspect]
     Active Substance: PIRFENIDONE
     Indication: IDIOPATHIC PULMONARY FIBROSIS
     Dosage: 267 MG, THREE TIMES IN 3 DAYS
     Route: 048
     Dates: start: 20161218, end: 20170301
  3. ERLOTINIB [Suspect]
     Active Substance: ERLOTINIB
     Route: 048
     Dates: start: 201704

REACTIONS (4)
  - Rash [Not Recovered/Not Resolved]
  - Non-small cell lung cancer [Not Recovered/Not Resolved]
  - Pruritus [Not Recovered/Not Resolved]
  - Small cell lung cancer [Unknown]

NARRATIVE: CASE EVENT DATE: 201703
